FAERS Safety Report 22393167 (Version 1)
Quarter: 2023Q2

REPORT INFORMATION
  Report Type: Spontaneous
  Country: IN (occurrence: IN)
  Receive Date: 20230601
  Receipt Date: 20230601
  Transmission Date: 20230721
  Serious: Yes (Hospitalization)
  Sender: FDA-Public Use
  Company Number: IN-drreddys-LIT/IND/23/0166103

PATIENT
  Age: 31 Year
  Sex: Male

DRUGS (5)
  1. DEXAMETHASONE [Suspect]
     Active Substance: DEXAMETHASONE
     Indication: COVID-19
  2. PANTOPRAZOLE [Suspect]
     Active Substance: PANTOPRAZOLE
     Indication: COVID-19
     Route: 042
  3. PIPERACILLIN [Suspect]
     Active Substance: PIPERACILLIN
     Indication: COVID-19
     Route: 042
  4. METRONIDAZOLE [Suspect]
     Active Substance: METRONIDAZOLE
     Indication: COVID-19
     Route: 042
  5. HEPARIN [Suspect]
     Active Substance: HEPARIN SODIUM
     Indication: COVID-19

REACTIONS (7)
  - COVID-19 [Unknown]
  - Substance-induced psychotic disorder [Unknown]
  - Agitation [Unknown]
  - General physical health deterioration [Unknown]
  - Sleep disorder [Unknown]
  - Psychiatric symptom [Recovering/Resolving]
  - Drug ineffective for unapproved indication [Unknown]
